FAERS Safety Report 5887532-4 (Version None)
Quarter: 2008Q3

REPORT INFORMATION
  Report Type: 
  Country: None (occurrence: None)
  Receive Date: 20080918
  Receipt Date: 20080910
  Transmission Date: 20090109
  Serious: Yes (Hospitalization)
  Sender: FDA-Public Use
  Company Number: PHHY2008BR21177

PATIENT
  Age: 26 Year
  Sex: Male

DRUGS (5)
  1. SANDIMMUNE [Suspect]
     Indication: RENAL TRANSPLANT
     Dosage: 50 MG, Q12H
     Route: 048
     Dates: start: 20080902
  2. SANDIMMUNE [Suspect]
     Dosage: 100 MG, Q12H
     Route: 048
  3. MICOFENOLATO [Concomitant]
     Indication: TRANSPLANT REJECTION
     Dosage: 500 MG, Q12H
     Route: 048
     Dates: start: 20080902
  4. BACTRIM [Concomitant]
     Dosage: HALF TABLET AT NIGHT
     Route: 048
  5. NYSTATIN [Concomitant]
     Indication: BACTERIAL INFECTION
     Dosage: 4 TIMES DAILY ON HIS MOUTH

REACTIONS (2)
  - NAUSEA [None]
  - RETCHING [None]
